FAERS Safety Report 4754128-7 (Version None)
Quarter: 2005Q3

REPORT INFORMATION
  Report Type: 
  Country: None (occurrence: None)
  Receive Date: 20050825
  Receipt Date: 20040916
  Transmission Date: 20060218
  Serious: Yes (Other)
  Sender: FDA-Public Use
  Company Number: HQWYE128620SEP04

PATIENT
  Age: 9 Year
  Sex: Female
  Weight: 29.06 kg

DRUGS (3)
  1. CHILDREN'S ADVIL [Suspect]
     Indication: INFLUENZA
     Dosage: 2 TEASPOONS X 1, ORAL
     Route: 048
     Dates: start: 20040915, end: 20040915
  2. CHILDREN'S ADVIL [Suspect]
     Indication: PHARYNGITIS
     Dosage: 2 TEASPOONS X 1, ORAL
     Route: 048
     Dates: start: 20040915, end: 20040915
  3. AMOXICILLIN [Concomitant]

REACTIONS (2)
  - RETCHING [None]
  - VOMITING [None]
